FAERS Safety Report 9649469 (Version 1)
Quarter: 2013Q4

REPORT INFORMATION
  Report Type: Spontaneous
  Country: GB (occurrence: None)
  Receive Date: 20131010
  Receipt Date: 20131010
  Transmission Date: 20140711
  Serious: Yes (Other)
  Sender: FDA-Public Use
  Company Number: E2B_00001245

PATIENT
  Age: 27 Year
  Sex: Male

DRUGS (3)
  1. LEVETIRACETAM (LEVETIRACETAM) [Suspect]
     Dosage: 500(UKNOWN, DAILY)
  2. SODIUM VALPROATE [Concomitant]
  3. TOPIRAMATE(UKNOWN)(TOPIRAMATE) [Concomitant]

REACTIONS (1)
  - Epilepsy [None]
